FAERS Safety Report 11835715 (Version 3)
Quarter: 2016Q1

REPORT INFORMATION
  Report Type: Report from Study
  Country: US (occurrence: US)
  Receive Date: 20151215
  Receipt Date: 20160125
  Transmission Date: 20160525
  Serious: Yes (Hospitalization)
  Sender: FDA-Public Use
  Company Number: US-MYLANLABS-2015M1043747

PATIENT

DRUGS (6)
  1. PREGABALIN. [Concomitant]
     Active Substance: PREGABALIN
     Dosage: 50 MG, BID
  2. SEVELAMER [Concomitant]
     Active Substance: SEVELAMER
     Dosage: 800 MG, QID
  3. CLINDAMYCIN [Concomitant]
     Active Substance: CLINDAMYCIN\CLINDAMYCIN PHOSPHATE
     Dosage: 150 MG, QID
  4. CLOZAPINE. [Suspect]
     Active Substance: CLOZAPINE
     Indication: SCHIZOAFFECTIVE DISORDER
     Dosage: 50 MG, HS
     Route: 048
  5. INSULIN [Concomitant]
     Active Substance: INSULIN NOS
     Dosage: UNK
  6. SEVELAMER [Concomitant]
     Active Substance: SEVELAMER
     Dosage: 2400 MG, AM

REACTIONS (4)
  - Haematoma [Unknown]
  - Full blood count abnormal [Recovered/Resolved]
  - Infection [Unknown]
  - Renal cancer [Unknown]

NARRATIVE: CASE EVENT DATE: 20151031
